FAERS Safety Report 7023551-2 (Version None)
Quarter: 2010Q3

REPORT INFORMATION
  Report Type: 
  Country: None (occurrence: None)
  Receive Date: 20100930
  Receipt Date: 20100930
  Transmission Date: 20110219
  Serious: Yes (Other)
  Sender: FDA-Public Use
  Company Number: None

PATIENT
  Age: 5 Month
  Sex: Male
  Weight: 4.9896 kg

DRUGS (4)
  1. EPOGEN [Suspect]
     Indication: ANAEMIA
     Dosage: .06 ML EVERY TUES + FRID SQ
     Route: 058
     Dates: start: 20100917, end: 20100917
  2. EPOGEN [Suspect]
     Indication: RENAL FAILURE CHRONIC
     Dosage: .06 ML EVERY TUES + FRID SQ
     Route: 058
     Dates: start: 20100917, end: 20100917
  3. EPOGEN [Suspect]
     Indication: ANAEMIA
     Dosage: .06 ML EVERY TUES + FRID SQ
     Route: 058
     Dates: start: 20100921, end: 20100921
  4. EPOGEN [Suspect]
     Indication: RENAL FAILURE CHRONIC
     Dosage: .06 ML EVERY TUES + FRID SQ
     Route: 058
     Dates: start: 20100921, end: 20100921

REACTIONS (1)
  - BLOOD CREATININE INCREASED [None]
